FAERS Safety Report 5095612-9 (Version None)
Quarter: 2006Q3

REPORT INFORMATION
  Report Type: 
  Country: None (occurrence: None)
  Receive Date: 20060901
  Receipt Date: 20060822
  Transmission Date: 20061208
  Serious: Yes (Death, Life-Threatening, Hospitalization, Disabling)
  Sender: FDA-Public Use
  Company Number: GB-MERCK-0608GBR00118

PATIENT
  Sex: Female
  Weight: 150 kg

DRUGS (9)
  1. ZOCOR [Suspect]
     Route: 048
  2. ERYTHROMYCIN [Suspect]
     Route: 048
     Dates: start: 20060325
  3. AMITRIPTYLINE HYDROCHLORIDE [Concomitant]
     Route: 048
  4. BUMETANIDE [Concomitant]
     Route: 048
  5. DIHYDROCODEINE [Concomitant]
     Route: 048
  6. LISINOPRIL [Concomitant]
     Route: 065
  7. METFORMIN [Concomitant]
     Route: 065
  8. ROSIGLITAZONE MALEATE [Concomitant]
     Route: 065
  9. LEVOTHYROXINE SODIUM [Concomitant]
     Route: 048

REACTIONS (4)
  - RENAL FAILURE ACUTE [None]
  - RHABDOMYOLYSIS [None]
  - SEPSIS [None]
  - SKIN ULCER [None]
